FAERS Safety Report 24533334 (Version 1)
Quarter: 2024Q4

REPORT INFORMATION
  Report Type: Spontaneous
  Country: US (occurrence: None)
  Receive Date: 20241021
  Receipt Date: 20241021
  Transmission Date: 20250115
  Serious: Yes (unspecified)
  Sender: Public
  Company Number: None

PATIENT
  Age: 53 Year
  Sex: Male
  Weight: 55.6 kg

DRUGS (1)
  1. ALECENSA [Suspect]
     Active Substance: ALECTINIB HYDROCHLORIDE
     Indication: Lung adenocarcinoma stage IV
     Dosage: FREQUENCY : TWICE A DAY;?
     Route: 048
     Dates: start: 20230712, end: 20240829

REACTIONS (8)
  - Pain in extremity [None]
  - Arthralgia [None]
  - Bradycardia [None]
  - Tendon rupture [None]
  - Fatigue [None]
  - Chest discomfort [None]
  - Increased appetite [None]
  - Pneumonitis [None]

NARRATIVE: CASE EVENT DATE: 20240826
